FAERS Safety Report 14990227 (Version 1)
Quarter: 2018Q2

REPORT INFORMATION
  Report Type: Spontaneous
  Country: US (occurrence: US)
  Receive Date: 20180608
  Receipt Date: 20180608
  Transmission Date: 20180711
  Serious: Yes (Other)
  Sender: FDA-Public Use
  Company Number: US-ROCHE-2014917

PATIENT
  Age: 64 Year
  Sex: Female
  Weight: 65.38 kg

DRUGS (2)
  1. ACTEMRA [Suspect]
     Active Substance: TOCILIZUMAB
     Indication: TEMPORAL ARTERITIS
     Dosage: UNKNOWN, 2 DOSES ONLY
     Route: 058
     Dates: start: 20171005
  2. PREDNISONE. [Concomitant]
     Active Substance: PREDNISONE
     Indication: TEMPORAL ARTERITIS
     Dosage: DOSE BET 15-30MG/D, DAILY, ONGOING
     Route: 065
     Dates: start: 20170801

REACTIONS (3)
  - Thrombocytopenia [Not Recovered/Not Resolved]
  - Haemorrhoidal haemorrhage [Unknown]
  - Contusion [Unknown]

NARRATIVE: CASE EVENT DATE: 20171016
